FAERS Safety Report 8319512-3 (Version None)
Quarter: 2012Q2

REPORT INFORMATION
  Report Type: 
  Country: None (occurrence: None)
  Receive Date: 20120427
  Receipt Date: 20120419
  Transmission Date: 20120825
  Serious: Yes (Disabling, Other)
  Sender: FDA-Public Use
  Company Number: US-JNJFOC-20120410488

PATIENT
  Age: 82 Year
  Sex: Male

DRUGS (13)
  1. VITAMIN E (TOCOPHERYL ACETATE) [Concomitant]
     Route: 065
  2. LEVAQUIN [Suspect]
     Indication: BRONCHITIS
     Route: 065
     Dates: start: 20120301, end: 20120301
  3. DALIRESP [Suspect]
     Indication: CHRONIC OBSTRUCTIVE PULMONARY DISEASE
     Route: 048
     Dates: start: 20111001
  4. SIMVASTATIN [Suspect]
     Indication: BLOOD CHOLESTEROL INCREASED
     Route: 065
     Dates: end: 20120401
  5. ASPIRIN [Concomitant]
     Route: 065
  6. MULTI-VITAMINS [Concomitant]
     Route: 065
  7. ALLOPURINOL [Concomitant]
     Indication: NEPHROLITHIASIS
     Route: 065
  8. FORADIL [Concomitant]
     Route: 065
  9. ASCORBIC ACID [Concomitant]
     Route: 065
  10. VITAMIN D [Concomitant]
     Route: 065
  11. ASMANEX TWISTHALER [Concomitant]
     Route: 065
  12. SPIRIVA [Concomitant]
     Route: 065
  13. ALBUTEROL [Concomitant]
     Route: 065

REACTIONS (8)
  - WEIGHT DECREASED [None]
  - SWELLING FACE [None]
  - OEDEMA PERIPHERAL [None]
  - GASTROOESOPHAGEAL REFLUX DISEASE [None]
  - ASTHENIA [None]
  - DRUG INEFFECTIVE [None]
  - FREQUENT BOWEL MOVEMENTS [None]
  - MUSCULAR WEAKNESS [None]
